FAERS Safety Report 19589926 (Version 1)
Quarter: 2021Q3

REPORT INFORMATION
  Report Type: Spontaneous
  Country: US (occurrence: US)
  Receive Date: 20210721
  Receipt Date: 20210721
  Transmission Date: 20211014
  Serious: Yes (Other)
  Sender: FDA-Public Use
  Company Number: US-PFIZER INC-2021868504

PATIENT
  Age: 71 Year
  Sex: Female

DRUGS (1)
  1. IBRANCE [Suspect]
     Active Substance: PALBOCICLIB
     Indication: BREAST CANCER FEMALE
     Dosage: 100 MG, CYCLIC (IBRANCE 100MG BY MOUTH QD (ONCE DAILY) FOR 21 DAYS)
     Route: 048
     Dates: start: 20210507

REACTIONS (5)
  - White blood cell count decreased [Unknown]
  - Nerve injury [Unknown]
  - Decreased appetite [Unknown]
  - Neutropenia [Unknown]
  - Nausea [Unknown]
